FAERS Safety Report 12717877 (Version 1)
Quarter: 2016Q3

REPORT INFORMATION
  Report Type: Spontaneous
  Country: ES (occurrence: ES)
  Receive Date: 20160906
  Receipt Date: 20160906
  Transmission Date: 20161109
  Serious: Yes (Other)
  Sender: FDA-Public Use
  Company Number: ES-PFIZER INC-2016411546

PATIENT
  Age: 78 Year
  Sex: Male

DRUGS (6)
  1. SIMVASTATIN. [Concomitant]
     Active Substance: SIMVASTATIN
     Dosage: 20 MG, DAILY
  2. OMEPRAZOLE. [Concomitant]
     Active Substance: OMEPRAZOLE
     Dosage: 20 MG, DAILY
  3. ASPIRIN /00002701/ [Concomitant]
     Active Substance: ASPIRIN
     Dosage: 100 MG, DAILY
  4. CARBOPLATIN. [Interacting]
     Active Substance: CARBOPLATIN
     Indication: LUNG ADENOCARCINOMA STAGE IV
     Dosage: UNK, CYCLIC (AUC5 (DAY 1, 21-DAY CYCLES))
  5. ENALAPRIL [Concomitant]
     Active Substance: ENALAPRIL
     Dosage: 10 MG, DAILY
  6. PACLITAXEL. [Suspect]
     Active Substance: PACLITAXEL
     Indication: LUNG ADENOCARCINOMA STAGE IV
     Dosage: UNK, CYCLIC (175 M2 (DAY 1, 21-DAY CYCLES))

REACTIONS (2)
  - Drug interaction [Unknown]
  - Hepatotoxicity [Recovered/Resolved]
